FAERS Safety Report 6746824-7 (Version None)
Quarter: 2010Q2

REPORT INFORMATION
  Report Type: 
  Country: None (occurrence: None)
  Receive Date: 20100528
  Receipt Date: 20100312
  Transmission Date: 20101027
  Serious: No
  Sender: FDA-Public Use
  Company Number: A0841874A

PATIENT
  Sex: Female

DRUGS (1)
  1. VENTOLIN [Suspect]
     Indication: DRUG USE FOR UNKNOWN INDICATION
     Dosage: 1PUFF AS REQUIRED
     Route: 055

REACTIONS (3)
  - GLOSSODYNIA [None]
  - PRODUCT QUALITY ISSUE [None]
  - STOMATITIS [None]
